FAERS Safety Report 15296448 (Version 1)
Quarter: 2018Q3

REPORT INFORMATION
  Report Type: Spontaneous
  Country: US (occurrence: US)
  Receive Date: 20180820
  Receipt Date: 20180820
  Transmission Date: 20181010
  Serious: Yes (Hospitalization, Other)
  Sender: FDA-Public Use
  Company Number: US-GLAXOSMITHKLINE-US2018148871

PATIENT
  Age: 64 Year
  Sex: Female

DRUGS (1)
  1. FLUTICASONE PROPIONATE. [Suspect]
     Active Substance: FLUTICASONE PROPIONATE
     Indication: RHINITIS ALLERGIC
     Dosage: 50 ?G, UNK
     Route: 045

REACTIONS (3)
  - Carpal tunnel syndrome [Recovering/Resolving]
  - Nocardiosis [Recovered/Resolved]
  - Tenosynovitis [Recovering/Resolving]
